FAERS Safety Report 4661968-1 (Version None)
Quarter: 2005Q2

REPORT INFORMATION
  Report Type: 
  Country: None (occurrence: None)
  Receive Date: 20050512
  Receipt Date: 20050502
  Transmission Date: 20051028
  Serious: Yes (Other)
  Sender: FDA-Public Use
  Company Number: US-2005-006715

PATIENT
  Sex: Female

DRUGS (1)
  1. MIRENA [Suspect]
     Dosage: 20 ?G/DAY, CONT, INTRA-UTERINE
     Route: 015
     Dates: start: 20040301

REACTIONS (10)
  - ABORTION SPONTANEOUS [None]
  - ARTHRALGIA [None]
  - BACK PAIN [None]
  - COMPLICATION OF DEVICE REMOVAL [None]
  - IUCD COMPLICATION [None]
  - IUD MIGRATION [None]
  - NERVE COMPRESSION [None]
  - PCO2 INCREASED [None]
  - POST PROCEDURAL COMPLICATION [None]
  - PREGNANCY WITH CONTRACEPTIVE DEVICE [None]
